FAERS Safety Report 13433602 (Version 2)
Quarter: 2017Q2

REPORT INFORMATION
  Report Type: Spontaneous
  Country: FR (occurrence: FR)
  Receive Date: 20170412
  Receipt Date: 20170425
  Transmission Date: 20170830
  Serious: Yes (Life-Threatening, Hospitalization, Disabling)
  Sender: FDA-Public Use
  Company Number: FR-TEVA-759220ROM

PATIENT
  Age: 67 Year
  Sex: Male

DRUGS (43)
  1. DOXORUBICINE TEVA [Suspect]
     Active Substance: DOXORUBICIN
     Indication: NON-HODGKIN^S LYMPHOMA STAGE IV
     Dosage: 100 MILLIGRAM DAILY;
     Route: 042
     Dates: start: 20160425
  2. DOXORUBICINE TEVA [Suspect]
     Active Substance: DOXORUBICIN
     Dosage: 100 MILLIGRAM DAILY;
     Route: 042
     Dates: start: 20160719
  3. ENDOXAN [Suspect]
     Active Substance: CYCLOPHOSPHAMIDE
     Indication: NON-HODGKIN^S LYMPHOMA STAGE IV
     Dosage: 1500 MILLIGRAM DAILY;
     Route: 042
     Dates: start: 20160425
  4. ENDOXAN [Suspect]
     Active Substance: CYCLOPHOSPHAMIDE
     Dosage: 1500 MILLIGRAM DAILY;
     Route: 042
     Dates: start: 20160719
  5. CORTANCYL [Suspect]
     Active Substance: PREDNISONE
     Dosage: 80 MILLIGRAM DAILY;
     Route: 048
     Dates: start: 20160517
  6. MABTHERA [Suspect]
     Active Substance: RITUXIMAB
     Dosage: 1400 MILLIGRAM DAILY;
     Route: 058
     Dates: start: 20160628
  7. MABTHERA [Suspect]
     Active Substance: RITUXIMAB
     Dosage: 1400 MILLIGRAM DAILY;
     Route: 058
     Dates: start: 20160809
  8. MABTHERA [Suspect]
     Active Substance: RITUXIMAB
     Dosage: 1400 MILLIGRAM DAILY;
     Route: 058
     Dates: start: 20170324
  9. METHYLPREDNISOLONE MYLAN [Concomitant]
     Active Substance: METHYLPREDNISOLONE
     Indication: PREMEDICATION
     Route: 042
  10. ONDANSETRON ACCORD [Concomitant]
     Active Substance: ONDANSETRON
     Indication: PREMEDICATION
     Route: 042
  11. DOXORUBICINE TEVA [Suspect]
     Active Substance: DOXORUBICIN
     Dosage: 100 MILLIGRAM DAILY;
     Route: 042
     Dates: start: 20160607
  12. ENDOXAN [Suspect]
     Active Substance: CYCLOPHOSPHAMIDE
     Dosage: 1500 MILLIGRAM DAILY;
     Route: 042
     Dates: start: 20160607
  13. ENDOXAN [Suspect]
     Active Substance: CYCLOPHOSPHAMIDE
     Dosage: 1500 MILLIGRAM DAILY;
     Route: 042
     Dates: start: 20160809
  14. VINCRISTINE HOSPIRA [Suspect]
     Active Substance: VINCRISTINE
     Dosage: 2.8 MILLIGRAM DAILY;
     Route: 042
     Dates: start: 20160517
  15. VINCRISTINE HOSPIRA [Suspect]
     Active Substance: VINCRISTINE
     Dosage: 2.8 MILLIGRAM DAILY;
     Route: 042
     Dates: start: 20160719
  16. DOLIPRANE [Concomitant]
     Active Substance: ACETAMINOPHEN
     Indication: PREMEDICATION
  17. DOXORUBICINE TEVA [Suspect]
     Active Substance: DOXORUBICIN
     Dosage: 100 MILLIGRAM DAILY;
     Route: 042
     Dates: start: 20160628
  18. VINCRISTINE HOSPIRA [Suspect]
     Active Substance: VINCRISTINE
     Dosage: 2.8 MILLIGRAM DAILY;
     Route: 042
     Dates: start: 20160809
  19. CORTANCYL [Suspect]
     Active Substance: PREDNISONE
     Indication: NON-HODGKIN^S LYMPHOMA STAGE IV
     Dosage: 80 MILLIGRAM DAILY;
     Route: 048
     Dates: start: 20160425
  20. MABTHERA [Suspect]
     Active Substance: RITUXIMAB
     Indication: NON-HODGKIN^S LYMPHOMA STAGE IV
     Dosage: 1400 MILLIGRAM DAILY;
     Route: 042
     Dates: start: 20160425
  21. MABTHERA [Suspect]
     Active Substance: RITUXIMAB
     Dosage: 1400 MILLIGRAM DAILY;
     Route: 058
     Dates: start: 20160905
  22. DOXORUBICINE TEVA [Suspect]
     Active Substance: DOXORUBICIN
     Dosage: 100 MILLIGRAM DAILY;
     Route: 042
     Dates: start: 20160809
  23. ENDOXAN [Suspect]
     Active Substance: CYCLOPHOSPHAMIDE
     Dosage: 1500 MILLIGRAM DAILY;
     Route: 042
     Dates: start: 20160628, end: 20160628
  24. CORTANCYL [Suspect]
     Active Substance: PREDNISONE
     Dosage: 80 MILLIGRAM DAILY;
     Route: 048
     Dates: start: 20160719
  25. MABTHERA [Suspect]
     Active Substance: RITUXIMAB
     Dosage: 1400 MILLIGRAM DAILY;
     Route: 058
     Dates: start: 20160607
  26. MABTHERA [Suspect]
     Active Substance: RITUXIMAB
     Dosage: 1400 MILLIGRAM DAILY;
     Route: 058
     Dates: start: 20170127
  27. VINCRISTINE HOSPIRA [Suspect]
     Active Substance: VINCRISTINE
     Dosage: 2.8 MILLIGRAM DAILY;
     Route: 042
     Dates: start: 20160628
  28. MABTHERA [Suspect]
     Active Substance: RITUXIMAB
     Dosage: 1400 MILLIGRAM DAILY;
     Route: 058
     Dates: start: 20160517
  29. DOLIPRANE [Concomitant]
     Active Substance: ACETAMINOPHEN
     Indication: PREMEDICATION
  30. MESNA EG [Concomitant]
     Active Substance: MESNA
     Route: 042
  31. ENDOXAN [Suspect]
     Active Substance: CYCLOPHOSPHAMIDE
     Dosage: 1500 MILLIGRAM DAILY;
     Route: 042
     Dates: start: 20160517
  32. VINCRISTINE HOSPIRA [Suspect]
     Active Substance: VINCRISTINE
     Dosage: 2.8 MILLIGRAM DAILY;
     Route: 042
     Dates: start: 20160425
  33. VINCRISTINE HOSPIRA [Suspect]
     Active Substance: VINCRISTINE
     Dosage: 2.8 MILLIGRAM DAILY;
     Route: 042
     Dates: start: 20160607
  34. CORTANCYL [Suspect]
     Active Substance: PREDNISONE
     Dosage: 80 MILLIGRAM DAILY;
     Route: 048
     Dates: start: 20160809
  35. UROMITEXAN [Concomitant]
     Active Substance: MESNA
     Indication: PREMEDICATION
     Route: 048
  36. MABTHERA [Suspect]
     Active Substance: RITUXIMAB
     Dosage: 1400 MILLIGRAM DAILY;
     Route: 058
     Dates: start: 20160719
  37. MABTHERA [Suspect]
     Active Substance: RITUXIMAB
     Dosage: 1400 MILLIGRAM DAILY;
     Route: 058
     Dates: start: 20160920
  38. MABTHERA [Suspect]
     Active Substance: RITUXIMAB
     Dosage: 1400 MILLIGRAM DAILY;
     Route: 058
     Dates: start: 20161202
  39. POLARAMINE [Concomitant]
     Active Substance: DEXCHLORPHENIRAMINE MALEATE
     Indication: PREMEDICATION
  40. DOXORUBICINE TEVA [Suspect]
     Active Substance: DOXORUBICIN
     Dosage: 100 MILLIGRAM DAILY;
     Route: 042
     Dates: start: 20160517
  41. CORTANCYL [Suspect]
     Active Substance: PREDNISONE
     Dosage: 80 MILLIGRAM DAILY;
     Route: 048
     Dates: start: 20160607
  42. CORTANCYL [Suspect]
     Active Substance: PREDNISONE
     Dosage: 80 MILLIGRAM DAILY;
     Route: 048
     Dates: start: 20160628
  43. POLARAMINE [Concomitant]
     Active Substance: DEXCHLORPHENIRAMINE MALEATE
     Indication: PREMEDICATION
     Route: 042

REACTIONS (5)
  - Ejection fraction decreased [Recovering/Resolving]
  - Cardiac failure [Recovering/Resolving]
  - Pulmonary hypertension [Recovering/Resolving]
  - Tachyarrhythmia [Recovered/Resolved]
  - Mitral valve incompetence [Recovering/Resolving]

NARRATIVE: CASE EVENT DATE: 20161122
